FAERS Safety Report 13010168 (Version 1)
Quarter: 2016Q4

REPORT INFORMATION
  Report Type: Spontaneous
  Country: US (occurrence: US)
  Receive Date: 20161206
  Receipt Date: 20161206
  Transmission Date: 20170207
  Serious: No
  Sender: FDA-Public Use
  Company Number: None

PATIENT
  Age: 57 Year
  Sex: Female

DRUGS (1)
  1. TASIGNA [Suspect]
     Active Substance: NILOTINIB
     Indication: LYMPHOCYTIC LEUKAEMIA

REACTIONS (3)
  - Dyspnoea [None]
  - Disease complication [None]
  - Pleural effusion [None]

NARRATIVE: CASE EVENT DATE: 20161206
